FAERS Safety Report 20500391 (Version 2)
Quarter: 2022Q1

REPORT INFORMATION
  Report Type: Spontaneous
  Country: US (occurrence: US)
  Receive Date: 20220222
  Receipt Date: 20220323
  Transmission Date: 20220423
  Serious: No
  Sender: FDA-Public Use
  Company Number: US-AIMMUNE THERAPEUTICS, INC.-2022AIMT00114

PATIENT

DRUGS (2)
  1. PALFORZIA [Suspect]
     Active Substance: PEANUT
     Indication: Food allergy
     Dosage: 20 MG, 1X/DAY
     Route: 048
     Dates: start: 20220202, end: 20220209
  2. PALFORZIA [Suspect]
     Active Substance: PEANUT
     Dosage: 10 MG, 1X/DAY
     Route: 048
     Dates: start: 20220210

REACTIONS (3)
  - Nasal congestion [Unknown]
  - Urticaria [Unknown]
  - Vomiting [Unknown]

NARRATIVE: CASE EVENT DATE: 20220201
